FAERS Safety Report 10747356 (Version 1)
Quarter: 2015Q1

REPORT INFORMATION
  Report Type: Spontaneous
  Country: US (occurrence: None)
  Receive Date: 20150120
  Receipt Date: 20150120
  Transmission Date: 20150721
  Serious: No
  Sender: FDA-Public Use
  Company Number: AEGR000915

PATIENT
  Age: 50 Year
  Sex: Female
  Weight: 102 kg

DRUGS (25)
  1. MINOXIDIL. [Concomitant]
     Active Substance: MINOXIDIL
  2. PRILOSEC (OMEPRAZOLE) [Concomitant]
     Active Substance: OMEPRAZOLE MAGNESIUM
  3. PSORCON (DIFLORASONE DIACETATE) OINTMENT [Concomitant]
  4. CRESTOR [Concomitant]
     Active Substance: ROSUVASTATIN CALCIUM
  5. ADVAIR DISKUS [Concomitant]
     Active Substance: FLUTICASONE PROPIONATE\SALMETEROL XINAFOATE
  6. HYDRALAZINE HCL (HYDRALAZINE HYDROCHLORIDE) [Concomitant]
  7. METOPROLOL SUCCINATE. [Concomitant]
     Active Substance: METOPROLOL SUCCINATE
  8. TRAMADOL HYDROCHLORIDE. [Concomitant]
     Active Substance: TRAMADOL HYDROCHLORIDE
  9. OMEGA 3,6,9 [Concomitant]
  10. VITAMIN E (TOCOPHERYL ACETATE) [Concomitant]
  11. PRO-AIR (PROCATEROL HYDROCHLORIDE) [Concomitant]
  12. ASPIRIN (ACETYLSALICYLIC ACID) [Concomitant]
     Active Substance: ASPIRIN
  13. SULFASALAZINE. [Concomitant]
     Active Substance: SULFASALAZINE
  14. HYDROCORTISONE VALERATE. [Concomitant]
     Active Substance: HYDROCORTISONE VALERATE
  15. ZETIA [Concomitant]
     Active Substance: EZETIMIBE
  16. JUXTAPID [Suspect]
     Active Substance: LOMITAPIDE MESYLATE
     Indication: TYPE IIA HYPERLIPIDAEMIA
     Route: 048
     Dates: start: 20141018
  17. LIDEX (FLUOCINONIDE) OINTMENT [Concomitant]
  18. TORSEMIDE. [Concomitant]
     Active Substance: TORSEMIDE
  19. TRICOR [Concomitant]
     Active Substance: FENOFIBRATE
  20. METFORMIN HCL (METFORMIN HYDROCHLORIDE) [Concomitant]
  21. KLOR-CON [Concomitant]
     Active Substance: POTASSIUM CHLORIDE
  22. NITROSTAT (GLYCERYL TRINITRATE) [Concomitant]
  23. LEVOTHYROXINE SODIUM. [Concomitant]
     Active Substance: LEVOTHYROXINE SODIUM
  24. RECLAST [Concomitant]
     Active Substance: ZOLEDRONIC ACID
  25. CITRACAL + D (CALCIUM CITRATE, ERGOCALCIFEROL) [Concomitant]

REACTIONS (1)
  - Weight decreased [None]
